FAERS Safety Report 5115576-9 (Version None)
Quarter: 2006Q3

REPORT INFORMATION
  Report Type: 
  Country: None (occurrence: None)
  Receive Date: 20060927
  Receipt Date: 20060918
  Transmission Date: 20061208
  Serious: Yes (Other)
  Sender: FDA-Public Use
  Company Number: US-BAYER-200613957BCC

PATIENT
  Age: 69 Year
  Sex: Male
  Weight: 100 kg

DRUGS (9)
  1. ALEVE [Suspect]
     Indication: ANALGESIC EFFECT
     Dosage: TOTAL DAILY DOSE: 440 MG  UNIT DOSE: 220 MG
     Route: 048
     Dates: start: 20030101
  2. DILTIAZEM HCL [Concomitant]
  3. KAISER ASPIRIN [Concomitant]
  4. OMEPRAZOLE [Concomitant]
  5. VENLAFAXINE HCL [Concomitant]
  6. LORAZEPAM [Concomitant]
  7. ZOCOR [Concomitant]
  8. OMEGA 3 [Concomitant]
  9. GENERIC MULTIVITAMIN [Concomitant]

REACTIONS (6)
  - AORTIC VALVE DISEASE [None]
  - CORONARY ARTERIAL STENT INSERTION [None]
  - LUNG LOBECTOMY [None]
  - LUNG NEOPLASM MALIGNANT [None]
  - STOMACH DISCOMFORT [None]
  - VASCULAR BYPASS GRAFT [None]
